FAERS Safety Report 10068478 (Version 2)
Quarter: 2014Q2

REPORT INFORMATION
  Report Type: Spontaneous
  Country: US (occurrence: US)
  Receive Date: 20140409
  Receipt Date: 20140513
  Transmission Date: 20141212
  Serious: No
  Sender: FDA-Public Use
  Company Number: US-PFIZER INC-2014096543

PATIENT
  Age: 14 Year
  Sex: Male

DRUGS (1)
  1. GENOTROPIN [Suspect]
     Indication: DWARFISM
     Dosage: 2 MG, DAILY
     Route: 058
     Dates: start: 20140328

REACTIONS (6)
  - Abdominal pain lower [Unknown]
  - Constipation [Recovered/Resolved]
  - Headache [Unknown]
  - Nasopharyngitis [Unknown]
  - Oropharyngeal pain [Unknown]
  - Abdominal pain upper [Unknown]
